FAERS Safety Report 17705522 (Version 1)
Quarter: 2020Q2

REPORT INFORMATION
  Report Type: Spontaneous
  Country: IT (occurrence: IT)
  Receive Date: 20200424
  Receipt Date: 20200424
  Transmission Date: 20200714
  Serious: Yes (Other)
  Sender: FDA-Public Use
  Company Number: NVSC2020IT108527

PATIENT
  Age: 6 Day
  Sex: Female

DRUGS (2)
  1. IBUPROFEN. [Suspect]
     Active Substance: IBUPROFEN
     Indication: PATENT DUCTUS ARTERIOSUS
     Dosage: 10 MG/KG, QD
     Route: 042
     Dates: start: 2013, end: 2013
  2. IBUPROFEN. [Suspect]
     Active Substance: IBUPROFEN
     Dosage: 5 MG, QD
     Route: 042
     Dates: start: 2013, end: 2013

REACTIONS (1)
  - Tracheal haemorrhage [Unknown]

NARRATIVE: CASE EVENT DATE: 20130602
